FAERS Safety Report 23960266 (Version 1)
Quarter: 2024Q2

REPORT INFORMATION
  Report Type: Spontaneous
  Country: US (occurrence: US)
  Receive Date: 20240611
  Receipt Date: 20240611
  Transmission Date: 20240716
  Serious: No
  Sender: FDA-Public Use
  Company Number: US-BRISTOL-MYERS SQUIBB COMPANY-2024-094068

PATIENT
  Age: 76 Year
  Sex: Male
  Weight: 121.56 kg

DRUGS (1)
  1. REVLIMID [Suspect]
     Active Substance: LENALIDOMIDE
     Indication: Myelodysplastic syndrome
     Dosage: DOSE : 10 MG;     FREQ : ONCE DAILY
     Route: 048

REACTIONS (6)
  - Visual impairment [Unknown]
  - Dizziness [Unknown]
  - Back pain [Unknown]
  - Muscle spasms [Unknown]
  - Memory impairment [Unknown]
  - Overweight [Unknown]
